FAERS Safety Report 15981155 (Version 1)
Quarter: 2019Q1

REPORT INFORMATION
  Report Type: Spontaneous
  Country: UM (occurrence: UM)
  Receive Date: 20190218
  Receipt Date: 20190218
  Transmission Date: 20190418
  Serious: Yes (Other)
  Sender: FDA-Public Use
  Company Number: None

PATIENT
  Age: 2 Month
  Sex: Male

DRUGS (3)
  1. GRIPE WATER [Suspect]
     Active Substance: DIETARY SUPPLEMENT
     Indication: FLATULENCE
     Dosage: ?          QUANTITY:0.25 DROP(S);?
     Route: 048
     Dates: start: 20190101, end: 20190218
  2. TYLENOL [Concomitant]
     Active Substance: ACETAMINOPHEN
  3. GRIPE WATER [Suspect]
     Active Substance: DIETARY SUPPLEMENT
     Indication: CONSTIPATION
     Dosage: ?          QUANTITY:0.25 DROP(S);?
     Route: 048
     Dates: start: 20190101, end: 20190218

REACTIONS (4)
  - Flatulence [None]
  - Dysphagia [None]
  - Dyspnoea [None]
  - Infrequent bowel movements [None]

NARRATIVE: CASE EVENT DATE: 20190101
